FAERS Safety Report 7381895-9 (Version None)
Quarter: 2011Q1

REPORT INFORMATION
  Report Type: 
  Country: None (occurrence: None)
  Receive Date: 20110329
  Receipt Date: 20110324
  Transmission Date: 20110831
  Serious: Yes (Other)
  Sender: FDA-Public Use
  Company Number: CHPA2011US04456

PATIENT
  Sex: Male

DRUGS (1)
  1. MAALOX MAX ANTACID+ANTIGAS [Suspect]
     Indication: DYSPEPSIA
     Dosage: UNK, UNK
     Route: 048
     Dates: start: 20110310

REACTIONS (1)
  - BLOOD GLUCOSE INCREASED [None]
